FAERS Safety Report 18923912 (Version 1)
Quarter: 2021Q1

REPORT INFORMATION
  Report Type: Spontaneous
  Country: AR (occurrence: AR)
  Receive Date: 20210222
  Receipt Date: 20210222
  Transmission Date: 20210420
  Serious: Yes (Other)
  Sender: FDA-Public Use
  Company Number: AR-PFIZER INC-2021137167

PATIENT
  Age: 62 Year
  Sex: Male

DRUGS (2)
  1. SUTENT [Suspect]
     Active Substance: SUNITINIB MALATE
     Indication: METASTATIC RENAL CELL CARCINOMA
     Dosage: UNK, DAILY (SCHEME UNKNOWN)
     Dates: start: 20181113
  2. SUTENT [Suspect]
     Active Substance: SUNITINIB MALATE
     Dosage: UNK, DAILY (SCHEME UNKNOWN)
     Dates: start: 20181113, end: 20201222

REACTIONS (7)
  - Loss of consciousness [Unknown]
  - Malaise [Unknown]
  - Feeding disorder [Unknown]
  - General physical health deterioration [Unknown]
  - Hypokinesia [Unknown]
  - COVID-19 [Unknown]
  - Bone disorder [Unknown]
